FAERS Safety Report 23993819 (Version 2)
Quarter: 2024Q3

REPORT INFORMATION
  Report Type: Spontaneous
  Country: DE (occurrence: DE)
  Receive Date: 20240620
  Receipt Date: 20240716
  Transmission Date: 20241017
  Serious: Yes (Other)
  Sender: REGENERON
  Company Number: DE-BAYER-2024A088134

PATIENT
  Sex: Female

DRUGS (1)
  1. EYLEA HD [Suspect]
     Active Substance: AFLIBERCEPT
     Indication: Diabetic retinal oedema
     Dosage: 8MG,  SOLUTION FOR INJECTION, 114.3 MG/ML
     Dates: start: 20240605

REACTIONS (1)
  - Vitreous opacities [Recovered/Resolved]

NARRATIVE: CASE EVENT DATE: 20240606
